FAERS Safety Report 4992421-3 (Version None)
Quarter: 2006Q2

REPORT INFORMATION
  Report Type: 
  Country: None (occurrence: None)
  Receive Date: 20060502
  Receipt Date: 20060419
  Transmission Date: 20061013
  Serious: Yes (Hospitalization)
  Sender: FDA-Public Use
  Company Number: HQWYE879020APR06

PATIENT
  Age: 51 Year
  Sex: Female

DRUGS (2)
  1. EFFEXOR [Suspect]
     Indication: DEPRESSION
     Dosage: 300 MG 1X PER 1 DAY, ORAL
     Route: 048
  2. OROXINE          (LEVOTHYROXINE SODIUM) [Concomitant]

REACTIONS (16)
  - AGGRESSION [None]
  - AKATHISIA [None]
  - AUTOMATISM [None]
  - CHEST PAIN [None]
  - DELIRIUM [None]
  - DRUG WITHDRAWAL SYNDROME [None]
  - ENURESIS [None]
  - LIVER FUNCTION TEST ABNORMAL [None]
  - MOOD ALTERED [None]
  - PHYSICAL ASSAULT [None]
  - PSYCHIATRIC SYMPTOM [None]
  - PSYCHOMOTOR HYPERACTIVITY [None]
  - SELF INJURIOUS BEHAVIOUR [None]
  - SEROTONIN SYNDROME [None]
  - SHOULDER PAIN [None]
  - SUICIDE ATTEMPT [None]
